FAERS Safety Report 17162377 (Version 1)
Quarter: 2019Q4

REPORT INFORMATION
  Report Type: Spontaneous
  Country: US (occurrence: US)
  Receive Date: 20191216
  Receipt Date: 20191216
  Transmission Date: 20200122
  Serious: No
  Sender: FDA-Public Use
  Company Number: None

PATIENT
  Age: 68 Year
  Sex: Female
  Weight: 62.1 kg

DRUGS (3)
  1. ACETAMINOPHEN 650MG PO [Concomitant]
     Dates: start: 20191211, end: 20191211
  2. DIPHENHYDRAMINE 50MG IVP [Concomitant]
     Dates: start: 20191211, end: 20191211
  3. GAMMAGARD LIQUID [Suspect]
     Active Substance: HUMAN IMMUNOGLOBULIN G
     Indication: HYPOGAMMAGLOBULINAEMIA
     Dosage: ?          OTHER FREQUENCY:ONCE A MONTH;?
     Route: 042
     Dates: start: 20191211, end: 20191211

REACTIONS (4)
  - Pruritus [None]
  - Erythema [None]
  - Infusion related reaction [None]
  - Rash [None]

NARRATIVE: CASE EVENT DATE: 20191211
